FAERS Safety Report 8909480 (Version 2)
Quarter: 2013Q3

REPORT INFORMATION
  Report Type: Spontaneous
  Country: CA (occurrence: None)
  Receive Date: 20121109
  Receipt Date: 20130719
  Transmission Date: 20140515
  Serious: Yes (Death)
  Sender: FDA-Public Use
  Company Number: 2012CA0366

PATIENT
  Age: 68 Year
  Sex: Female

DRUGS (2)
  1. KINERET [Suspect]
     Indication: RHEUMATOID ARTHRITIS
     Dosage: (100 MG, 1 IN 1 D)
     Route: 058
     Dates: start: 20031202
  2. PREDNISONE (PREDNISONE) (PREDNISONE) [Concomitant]

REACTIONS (3)
  - Death [None]
  - Pseudomonas infection [None]
  - Respiratory tract infection [None]
